FAERS Safety Report 8166369-X (Version None)
Quarter: 2012Q1

REPORT INFORMATION
  Report Type: 
  Country: None (occurrence: None)
  Receive Date: 20120227
  Receipt Date: 20110714
  Transmission Date: 20120608
  Serious: No
  Sender: FDA-Public Use
  Company Number: US-MYLANLABS-2011S1013005

PATIENT
  Age: 68 Year
  Sex: Female
  Weight: 64.86 kg

DRUGS (9)
  1. ZYRTEC [Concomitant]
  2. AMNESTEEM [Suspect]
     Indication: SEBACEOUS HYPERPLASIA
     Dates: start: 20110420, end: 20110620
  3. SINGULAIR [Concomitant]
  4. ALTACE [Concomitant]
  5. FOSAMAX [Concomitant]
  6. AMNESTEEM [Suspect]
     Indication: ACNE
     Dates: start: 20110420, end: 20110620
  7. ARIMIDEX [Concomitant]
  8. SIMVASTATIN [Concomitant]
  9. ASPIRIN [Concomitant]

REACTIONS (3)
  - DRY EYE [None]
  - MOOD SWINGS [None]
  - LIP DRY [None]
